FAERS Safety Report 20904648 (Version 1)
Quarter: 2022Q2

REPORT INFORMATION
  Report Type: Other
  Country: GB (occurrence: GB)
  Receive Date: 20220602
  Receipt Date: 20220602
  Transmission Date: 20220720
  Serious: Yes (Life-Threatening, Hospitalization)
  Sender: FDA-Public Use
  Company Number: None

PATIENT
  Age: 14 Year
  Sex: Female
  Weight: 30 kg

DRUGS (15)
  1. MONTELUKAST [Suspect]
     Active Substance: MONTELUKAST SODIUM
     Indication: Chronic graft versus host disease
     Dosage: 5 MILLIGRAM, (START DATE: APR 2019)
     Route: 048
  2. PREDNISOLONE [Suspect]
     Active Substance: PREDNISOLONE
     Indication: Chronic graft versus host disease
     Dosage: 1.25 MILLIGRAM, (START DATE: 04 NOV 2019)
     Route: 048
  3. IBRUTINIB [Suspect]
     Active Substance: IBRUTINIB
     Indication: Chronic graft versus host disease
     Dosage: 70 MILLIGRAM, TID (START DATE: 26 NOV 2019)
     Route: 048
     Dates: end: 20200616
  4. IBRUTINIB [Suspect]
     Active Substance: IBRUTINIB
     Dosage: 70 MILLIGRAM, TID (STOP DATE: 19 JUL 2020)
     Route: 048
  5. IBRUTINIB [Suspect]
     Active Substance: IBRUTINIB
     Dosage: 70 MILLIGRAM, TID (START DATE: 24 JUL 2020)
     Route: 048
     Dates: end: 20200727
  6. ONDANSETRON [Suspect]
     Active Substance: ONDANSETRON
     Indication: Prophylaxis of nausea and vomiting
     Dosage: 4 MILLIGRAM, (START DATE: DEC 2017)
     Route: 048
  7. POSACONAZOLE [Suspect]
     Active Substance: POSACONAZOLE
     Indication: Fungal infection
     Dosage: 300 MILLIGRAM, (START DATE: 15 JUL 2019)
     Route: 048
  8. ACYCLOVIR [Concomitant]
     Active Substance: ACYCLOVIR
     Indication: Viral infection
     Dosage: 800 MILLIGRAM, (STRAT DATE: 2018)
     Route: 048
  9. AZITHROMYCIN [Concomitant]
     Active Substance: AZITHROMYCIN
     Indication: Bacterial infection
     Dosage: 1500 MILLIGRAM PER DAY,500 MG, THREE TIMES A WEEK (START DATE: 04 NOV 2019)
     Route: 048
  10. COTRIMOXAZOLE [Concomitant]
     Active Substance: SULFAMETHOXAZOLE\TRIMETHOPRIM
     Indication: Pneumocystis jirovecii pneumonia
     Dosage: 480 MILLIGRAM, EVERY 3 WEEKS (START DATE: JUL 2019)
     Route: 048
  11. CYANOCOBALAMIN [Concomitant]
     Active Substance: CYANOCOBALAMIN
     Indication: Anaemia vitamin B12 deficiency
     Dosage: UNK, BID (30 MCG/ML)
     Route: 048
  12. FLUTICASONE PROPIONATE [Concomitant]
     Active Substance: FLUTICASONE PROPIONATE
     Indication: Graft versus host disease in lung
     Dosage: 2 DOSAGE FORM (START DATE: APR 2019)
  13. LANSOPRAZOLE [Concomitant]
     Active Substance: LANSOPRAZOLE
     Indication: Gastric disorder
     Dosage: 30 MILLIGRAM, (04 NOV 2019)
     Route: 048
  14. ACETAMINOPHEN [Concomitant]
     Active Substance: ACETAMINOPHEN
     Indication: Pain
     Dosage: 500 MILLIGRAM,(START DATE: FEB 2020)
     Route: 048
  15. VITAMIN B6 [Concomitant]
     Active Substance: PYRIDOXINE HYDROCHLORIDE
     Indication: Vitamin B complex deficiency
     Dosage: 2 DOSAGE FORM, QD (START DATE:APR 2017)
     Route: 048

REACTIONS (7)
  - Febrile neutropenia [Recovered/Resolved]
  - Hypoxia [Recovered/Resolved]
  - Chest pain [Recovered/Resolved]
  - Pericardial effusion [Recovered/Resolved]
  - Pyrexia [Recovered/Resolved]
  - Pyrexia [Recovered/Resolved]
  - Off label use [Unknown]

NARRATIVE: CASE EVENT DATE: 20200618
